FAERS Safety Report 8348463-3 (Version None)
Quarter: 2012Q2

REPORT INFORMATION
  Report Type: 
  Country: None (occurrence: None)
  Receive Date: 20120509
  Receipt Date: 20120508
  Transmission Date: 20120825
  Serious: Yes (Death)
  Sender: FDA-Public Use
  Company Number: CO-BIOMARINP-002198

PATIENT
  Age: 18 Year
  Sex: Male

DRUGS (3)
  1. ANTIHISTAMINIC MEDICATIONS [Concomitant]
     Indication: PREMEDICATION
  2. NAGLAZYME [Suspect]
     Indication: MUCOPOLYSACCHARIDOSIS VI
     Route: 041
     Dates: start: 20090401
  3. CORTICOSTEROIDS [Concomitant]
     Indication: PREMEDICATION

REACTIONS (1)
  - ASPIRATION [None]
